FAERS Safety Report 23699096 (Version 1)
Quarter: 2024Q2

REPORT INFORMATION
  Report Type: Spontaneous
  Country: US (occurrence: None)
  Receive Date: 20240402
  Receipt Date: 20240402
  Transmission Date: 20240716
  Serious: No
  Sender: FDA-Public Use
  Company Number: None

PATIENT
  Age: 16 Year
  Sex: Male

DRUGS (1)
  1. GENOTROPIN [Suspect]
     Active Substance: SOMATROPIN
     Indication: Short stature
     Dosage: 2.4 MG DAILY UNDER THE SKIN
     Route: 058
     Dates: start: 202311, end: 20240316

REACTIONS (2)
  - Generalised tonic-clonic seizure [None]
  - Intentional dose omission [None]

NARRATIVE: CASE EVENT DATE: 20240301
